FAERS Safety Report 4808317-3 (Version None)
Quarter: 2005Q4

REPORT INFORMATION
  Report Type: 
  Country: None (occurrence: None)
  Receive Date: 20051021
  Receipt Date: 20051010
  Transmission Date: 20060501
  Serious: Yes (Disabling, Other)
  Sender: FDA-Public Use
  Company Number: 167-20785-05100247

PATIENT
  Age: 71 Year
  Sex: Female

DRUGS (14)
  1. THALIDOMIDE - PHARMOIN (THALIDOMIDE) (50 MILLIGRAM, CAPSULES) [Suspect]
     Indication: SMALL CELL LUNG CANCER STAGE UNSPECIFIED
     Dosage: 50 MG, DAILY, ORAL
     Route: 048
     Dates: start: 20040908, end: 20050916
  2. CARBOPLATIN [Suspect]
     Indication: SMALL CELL LUNG CANCER STAGE UNSPECIFIED
     Dates: start: 20040908, end: 20050916
  3. ETOPOSIDE [Concomitant]
     Indication: SMALL CELL LUNG CANCER STAGE UNSPECIFIED
  4. MORPHINE [Concomitant]
  5. AMOXICILLAN (AMOXICILLIN) [Concomitant]
  6. MILPAR (MAG-LAX) [Concomitant]
  7. CIPROFLOXACIN [Concomitant]
  8. PAROXETINE HCL [Concomitant]
  9. OROMORPH [Concomitant]
  10. DICLOFENAC SR (DICLOFENAC SODIUM) [Concomitant]
  11. GABAPENTIN [Concomitant]
  12. LANSOPRAZOLE [Concomitant]
  13. DEXAMETHASONE [Concomitant]
  14. SENNA (SENNA) [Concomitant]

REACTIONS (7)
  - ASTHENIA [None]
  - FACIAL PALSY [None]
  - METASTASES TO SPINE [None]
  - SPINAL CORD COMPRESSION [None]
  - THORACIC VERTEBRAL FRACTURE [None]
  - TRANSIENT ISCHAEMIC ATTACK [None]
  - VIITH NERVE PARALYSIS [None]
